FAERS Safety Report 9775460 (Version 1)
Quarter: 2013Q4

REPORT INFORMATION
  Report Type: Spontaneous
  Country: US (occurrence: US)
  Receive Date: 20131220
  Receipt Date: 20131220
  Transmission Date: 20140711
  Serious: Yes (Hospitalization)
  Sender: FDA-Public Use
  Company Number: US-GLAXOSMITHKLINE-A1054063A

PATIENT
  Age: 55 Year
  Sex: Male

DRUGS (8)
  1. NICODERM CQ CLEAR 21MG [Suspect]
     Indication: SMOKING CESSATION THERAPY
     Route: 062
     Dates: start: 201312, end: 201312
  2. NEBULIZER [Concomitant]
  3. LISINOPRIL [Concomitant]
  4. OMEPRAZOLE [Concomitant]
  5. PLAVIX [Concomitant]
  6. ASPIRIN [Concomitant]
  7. ATIVAN [Concomitant]
  8. HUMALOG [Concomitant]

REACTIONS (7)
  - Angina pectoris [Unknown]
  - Oxygen saturation decreased [Unknown]
  - Chest pain [Recovered/Resolved]
  - Hypertension [Recovered/Resolved]
  - Nausea [Recovered/Resolved]
  - Nicotine dependence [Unknown]
  - Drug ineffective [Unknown]
